FAERS Safety Report 4610334-3 (Version None)
Quarter: 2005Q1

REPORT INFORMATION
  Report Type: 
  Country: None (occurrence: None)
  Receive Date: 20050314
  Receipt Date: 20050304
  Transmission Date: 20050727
  Serious: Yes (Hospitalization)
  Sender: FDA-Public Use
  Company Number: 212871

PATIENT
  Age: 77 Year
  Sex: Female
  Weight: 50.8 kg

DRUGS (3)
  1. AVASTIN [Suspect]
     Indication: COLORECTAL CANCER METASTATIC
     Dosage: 250 MG, Q2W, INTRAVENOUS
     Route: 042
     Dates: start: 20050223, end: 20050223
  2. OXALIPLATIN (OXALIPLATIN) [Concomitant]
  3. LEUCOVORIN CALCIUM [Concomitant]

REACTIONS (7)
  - BLOOD PRESSURE INCREASED [None]
  - DIZZINESS [None]
  - HEADACHE [None]
  - HEMIPARESIS [None]
  - INFUSION RELATED REACTION [None]
  - SPEECH DISORDER [None]
  - TREMOR [None]
